FAERS Safety Report 23771904 (Version 5)
Quarter: 2024Q4

REPORT INFORMATION
  Report Type: Spontaneous
  Country: CA (occurrence: CA)
  Receive Date: 20240423
  Receipt Date: 20241001
  Transmission Date: 20250114
  Serious: Yes (Hospitalization, Other)
  Sender: AUROBINDO
  Company Number: CA-MLMSERVICE-20231113-4653164-1

PATIENT
  Age: 76 Year
  Sex: Male
  Weight: 105 kg

DRUGS (21)
  1. OLANZAPINE [Suspect]
     Active Substance: OLANZAPINE
     Indication: Post-traumatic stress disorder
     Dosage: UNK
     Route: 048
     Dates: start: 2010
  2. OLANZAPINE [Suspect]
     Active Substance: OLANZAPINE
     Indication: Dementia
     Dosage: 2.5 MILLIGRAM, ONCE A DAY
     Route: 048
     Dates: start: 202106, end: 202106
  3. OLANZAPINE [Suspect]
     Active Substance: OLANZAPINE
     Indication: Social (pragmatic) communication disorder
  4. OLANZAPINE [Suspect]
     Active Substance: OLANZAPINE
     Indication: Agitation
  5. CITALOPRAM [Suspect]
     Active Substance: CITALOPRAM
     Indication: Dementia with Lewy bodies
     Dosage: 20 MILLIGRAM, ONCE A DAY
     Route: 065
  6. QUETIAPINE [Suspect]
     Active Substance: QUETIAPINE
     Indication: Post-traumatic stress disorder
     Dosage: 12.5 MILLIGRAM, ONCE A DAY
     Route: 065
  7. QUETIAPINE [Suspect]
     Active Substance: QUETIAPINE
     Indication: Dementia with Lewy bodies
     Dosage: 12.5 MILLIGRAM, 3 TIMES A DAY
     Route: 065
     Dates: start: 202106
  8. QUETIAPINE [Suspect]
     Active Substance: QUETIAPINE
     Indication: Dementia
     Dosage: 100 MILLIGRAM, ONCE A DAY
     Route: 065
     Dates: start: 202106, end: 202107
  9. QUETIAPINE [Suspect]
     Active Substance: QUETIAPINE
     Indication: Hallucination, visual
     Dosage: 25 MILLIGRAM, TWO TIMES A DAY
     Route: 065
     Dates: start: 202106
  10. RIVASTIGMINE [Suspect]
     Active Substance: RIVASTIGMINE
     Indication: Product used for unknown indication
     Dosage: 1.5 MILLIGRAM, ONCE A DAY
     Route: 065
  11. RISPERIDONE [Suspect]
     Active Substance: RISPERIDONE
     Indication: Post-traumatic stress disorder
     Dosage: 0.25 MILLIGRAMTWO TIMES A DAY(AS NEEDED)
     Route: 048
     Dates: start: 202106, end: 202106
  12. RISPERIDONE [Suspect]
     Active Substance: RISPERIDONE
     Indication: Dementia
  13. RIVASTIGMINE [Suspect]
     Active Substance: RIVASTIGMINE
     Indication: Dementia with Lewy bodies
     Dosage: 1.5 MILLIGRAM, TWO TIMES A DAY
     Route: 065
     Dates: start: 202106
  14. RIVASTIGMINE [Suspect]
     Active Substance: RIVASTIGMINE
     Dosage: 13.3 MILLIGRAM
     Route: 062
  15. CLONAZEPAM [Suspect]
     Active Substance: CLONAZEPAM
     Indication: Dementia with Lewy bodies
     Dosage: 0.5 MILLIGRAM ONCE A DAY(AT BEDTIME)
     Route: 065
  16. LORAZEPAM [Suspect]
     Active Substance: LORAZEPAM
     Indication: Dementia with Lewy bodies
     Dosage: MULTIPLE BREAKTHROUGH DOSES
     Route: 065
  17. LOXAPINE [Suspect]
     Active Substance: LOXAPINE
     Indication: Dementia with Lewy bodies
     Dosage: MULTIPLE BREAKTHROUGH DOSES
     Route: 065
  18. TRAZODONE [Suspect]
     Active Substance: TRAZODONE HYDROCHLORIDE
     Indication: Product used for unknown indication
     Dosage: 50 MILLIGRAM, 3 TIMES A DAY
     Route: 065
  19. TRAZODONE [Suspect]
     Active Substance: TRAZODONE HYDROCHLORIDE
     Dosage: 25 MILLIGRAM, ONCE A DAY
     Route: 065
  20. TRAZODONE [Suspect]
     Active Substance: TRAZODONE HYDROCHLORIDE
     Dosage: 50 MILLIGRAM, ONCE A DAY
     Route: 065
  21. TRAZODONE [Suspect]
     Active Substance: TRAZODONE HYDROCHLORIDE
     Dosage: 100 MILLIGRAM, ONCE A DAY
     Route: 065

REACTIONS (3)
  - Parkinsonism [Recovered/Resolved]
  - Off label use [Recovering/Resolving]
  - Drug ineffective [Unknown]

NARRATIVE: CASE EVENT DATE: 20210101
